FAERS Safety Report 4515410-1 (Version None)
Quarter: 2004Q4

REPORT INFORMATION
  Report Type: 
  Country: None (occurrence: None)
  Receive Date: 20041126
  Receipt Date: 20041118
  Transmission Date: 20050328
  Serious: Yes (Hospitalization, Disabling)
  Sender: FDA-Public Use
  Company Number: TPA2004A01439

PATIENT
  Age: 57 Year
  Sex: Female
  Weight: 110.2241 kg

DRUGS (8)
  1. ACTOS [Suspect]
     Indication: DIABETES MELLITUS NON-INSULIN-DEPENDENT
     Dosage: 15 MG 1 IN 1 D PER ORAL
     Route: 048
  2. GLIPIZDE (GLIPIZIDE) [Concomitant]
  3. METFORMIN HCL [Concomitant]
  4. LISINOPRIL [Concomitant]
  5. LIPITOR [Concomitant]
  6. MOVE FREE (ALL OTHER THERAPEUTIC PRODUCTS) [Concomitant]
  7. CENTRUNM-SILVER (CENTRUM SILVER) [Concomitant]
  8. FISH OIL CONCENTRATE (ALL OTHER THERAPEUTIC PRODUCTS) [Concomitant]

REACTIONS (6)
  - ARTHRITIS [None]
  - BLOOD GLUCOSE INCREASED [None]
  - CRUSH INJURY [None]
  - OEDEMA PERIPHERAL [None]
  - PAIN [None]
  - ROAD TRAFFIC ACCIDENT [None]
